FAERS Safety Report 13398327 (Version 4)
Quarter: 2017Q2

REPORT INFORMATION
  Report Type: Report from Study
  Country: US (occurrence: US)
  Receive Date: 20170403
  Receipt Date: 20170511
  Transmission Date: 20170830
  Serious: Yes (Other)
  Sender: FDA-Public Use
  Company Number: US-ALEXION PHARMACEUTICALS INC.-A201703203

PATIENT
  Sex: Female

DRUGS (1)
  1. STRENSIQ [Suspect]
     Active Substance: ASFOTASE ALFA
     Indication: HYPOPHOSPHATASIA
     Dosage: UNK
     Route: 058

REACTIONS (8)
  - Upper respiratory tract infection [Unknown]
  - Chills [Unknown]
  - Weight increased [Unknown]
  - Alopecia [Unknown]
  - Dysgeusia [Unknown]
  - Feeling cold [Unknown]
  - Autoimmune thyroiditis [Unknown]
  - Anosmia [Unknown]

NARRATIVE: CASE EVENT DATE: 20170317
